FAERS Safety Report 20562406 (Version 1)
Quarter: 2022Q1

REPORT INFORMATION
  Report Type: Other
  Country: None (occurrence: US)
  Receive Date: 20220307
  Receipt Date: 20220307
  Transmission Date: 20220424
  Serious: Yes (Life-Threatening, Other)
  Sender: FDA-Public Use
  Company Number: US-Breckenridge Pharmaceutical, Inc.-2126539

PATIENT
  Age: 74 Year
  Sex: Female

DRUGS (1)
  1. ZOLEDRONIC [Suspect]
     Active Substance: ZOLEDRONIC ACID
     Indication: Adenocarcinoma pancreas
     Route: 042

REACTIONS (3)
  - Fanconi syndrome [Unknown]
  - Aminoaciduria [Unknown]
  - Glycosuria [Unknown]
